FAERS Safety Report 8066015-X (Version None)
Quarter: 2012Q1

REPORT INFORMATION
  Report Type: 
  Country: None (occurrence: None)
  Receive Date: 20120117
  Receipt Date: 20111229
  Transmission Date: 20120608
  Serious: Yes (Hospitalization)
  Sender: FDA-Public Use
  Company Number: CIP11002882

PATIENT
  Age: 70 Year
  Sex: Female

DRUGS (2)
  1. LEVOTHYROXINE SODIUM [Concomitant]
  2. ACTONEL EC COMBI (RISEDRONATE SODIUM, EDETATE DISODIUM, CALCIUM CARBON [Suspect]
     Dosage: 35 MG, ORAL
     Route: 048
     Dates: start: 20111024, end: 20111025

REACTIONS (3)
  - BACK PAIN [None]
  - DYSPNOEA [None]
  - CHEST PAIN [None]
